FAERS Safety Report 21299065 (Version 4)
Quarter: 2022Q4

REPORT INFORMATION
  Report Type: Spontaneous
  Country: US (occurrence: US)
  Receive Date: 20220906
  Receipt Date: 20221216
  Transmission Date: 20230112
  Serious: No
  Sender: FDA-Public Use
  Company Number: US-PFIZER INC-202101103080

PATIENT
  Age: 21 Year
  Sex: Male

DRUGS (2)
  1. RAPAMUNE [Suspect]
     Active Substance: SIROLIMUS
     Indication: Haemophagocytic lymphohistiocytosis
     Dosage: 1 TABLET BY MOUTH 2 TIMES DAILY
     Route: 048
  2. RAPAMUNE [Suspect]
     Active Substance: SIROLIMUS
     Dosage: 0.5 MG,TAKE 2 TABLETS TWICE PER DAY

REACTIONS (3)
  - Off label use [Unknown]
  - Underdose [Unknown]
  - Liver function test increased [Unknown]
